FAERS Safety Report 17005253 (Version 1)
Quarter: 2019Q4

REPORT INFORMATION
  Report Type: Spontaneous
  Country: NZ (occurrence: NZ)
  Receive Date: 20191107
  Receipt Date: 20191107
  Transmission Date: 20200122
  Serious: Yes (Hospitalization, Other)
  Sender: FDA-Public Use
  Company Number: NZ-ABBVIE-19K-118-2991438-00

PATIENT

DRUGS (3)
  1. HUMIRA [Suspect]
     Active Substance: ADALIMUMAB
     Route: 058
     Dates: start: 2019
  2. HUMIRA [Suspect]
     Active Substance: ADALIMUMAB
     Route: 058
     Dates: start: 2012
  3. HUMIRA [Suspect]
     Active Substance: ADALIMUMAB
     Indication: CROHN^S DISEASE
     Route: 058
     Dates: start: 2010

REACTIONS (11)
  - Large intestinal stenosis [Unknown]
  - C-reactive protein abnormal [Unknown]
  - Colitis ulcerative [Unknown]
  - Herpes zoster [Unknown]
  - Procedural pain [Unknown]
  - Blood albumin abnormal [Unknown]
  - Colitis [Unknown]
  - Crohn^s disease [Unknown]
  - Colostomy [Unknown]
  - Colostomy [Unknown]
  - Abdominal mass [Unknown]

NARRATIVE: CASE EVENT DATE: 2010
